FAERS Safety Report 5133295-X (Version None)
Quarter: 2006Q4

REPORT INFORMATION
  Report Type: 
  Country: None (occurrence: None)
  Receive Date: 20060831
  Receipt Date: 20060505
  Transmission Date: 20070319
  Serious: No
  Sender: FDA-Public Use
  Company Number: 2006-BP-02918BP

PATIENT
  Age: 40 Year
  Sex: Female
  Weight: 60.78 kg

DRUGS (8)
  1. SPIRIVA [Suspect]
     Indication: PULMONARY FIBROSIS
     Dosage: 18 MCG (18 MCG),IH
     Dates: start: 20050325
  2. SPIRIVA [Suspect]
     Indication: TUBERCULOSIS
     Dosage: 18 MCG (18 MCG),IH
     Dates: start: 20050325
  3. SPIRIVA [Suspect]
  4. SPIRIVA [Suspect]
  5. LEVOTHYROID (LEVOTHYROXINE) [Concomitant]
  6. ALBUTEROL [Concomitant]
  7. PRILOSEC [Concomitant]
  8. ADVAIR DISKUS 100/50 [Concomitant]

REACTIONS (2)
  - DRUG INEFFECTIVE [None]
  - FATIGUE [None]
